FAERS Safety Report 5002570-1 (Version None)
Quarter: 2006Q2

REPORT INFORMATION
  Report Type: 
  Country: None (occurrence: None)
  Receive Date: 20060510
  Receipt Date: 20060427
  Transmission Date: 20061013
  Serious: Yes (Other)
  Sender: FDA-Public Use
  Company Number: HQWYE025815DEC05

PATIENT
  Age: 59 Year
  Sex: Male

DRUGS (22)
  1. MYLOTARG [Suspect]
     Indication: ACUTE MYELOID LEUKAEMIA RECURRENT
     Dosage: 16 MG (9 MG/M2/DAY) INTRAVENOUS DRIP
     Route: 041
     Dates: start: 20051130, end: 20051130
  2. VFEND [Suspect]
     Indication: BACTERIAL INFECTION
     Dosage: 400 MG 1X PER 1 DAY INTRAVENOUS DRIP
     Route: 041
     Dates: start: 20051207, end: 20051209
  3. MEROPEN (MEROPENEM) [Concomitant]
  4. AMIKACIN SULFATE [Concomitant]
  5. FUNGUARD   (MICAFUNGIN SODIUM) [Concomitant]
  6. LEUKOPROL       (MIRIMOSTIM) [Concomitant]
  7. TIENAM (CILASTATIN/IMIPENEM) [Concomitant]
  8. OZEX (TOSUFLOXACIN TOSILATE) [Concomitant]
  9. SULFAMETHOXAZOLE + TRIMETHOPRIM [Concomitant]
  10. ITRACONAZOLE [Concomitant]
  11. URSO 250 [Concomitant]
  12. CARBENIN (BETAMIPRON/PANIPENEM) [Concomitant]
  13. HABEKACIN (ARBEKACIN) [Concomitant]
  14. TARGOCID [Concomitant]
  15. VANCOMYCIN HYDROCHLORIDE [Concomitant]
  16. STRONG-NEO-MINOPHAGEN C (AMINOACETIC ACID/CYSTEINE/GLYCYRRHIZIC  ACID) [Concomitant]
  17. ALPROSTADIL [Concomitant]
  18. ZOVIRAX [Concomitant]
  19. FAMOTIDINE [Concomitant]
  20. CLINDAMYCIN HCL [Concomitant]
  21. UNGIZONE (AMPHOTERICIN B) [Concomitant]
  22. MINOCIN [Concomitant]

REACTIONS (9)
  - ABDOMINAL PAIN [None]
  - ANOREXIA [None]
  - FIBRIN DEGRADATION PRODUCTS INCREASED [None]
  - HEPATITIS [None]
  - HICCUPS [None]
  - INTERSTITIAL LUNG DISEASE [None]
  - NEUTROPENIC INFECTION [None]
  - VENOOCCLUSIVE LIVER DISEASE [None]
  - WEIGHT INCREASED [None]
